FAERS Safety Report 10458881 (Version 5)
Quarter: 2015Q3

REPORT INFORMATION
  Report Type: Spontaneous
  Country: US (occurrence: US)
  Receive Date: 20140917
  Receipt Date: 20150924
  Transmission Date: 20151125
  Serious: Yes (Death, Hospitalization)
  Sender: FDA-Public Use
  Company Number: US-ROXANE LABORATORIES, INC.-2014-RO-01416RO

PATIENT
  Age: 88 Year
  Sex: Female
  Weight: 59 kg

DRUGS (2)
  1. PREDNISONE. [Suspect]
     Active Substance: PREDNISONE
     Indication: PLASMA CELL MYELOMA
     Dosage: 20 MG
     Route: 048
     Dates: start: 20140528
  2. VELCADE [Suspect]
     Active Substance: BORTEZOMIB
     Indication: PLASMA CELL MYELOMA
     Route: 058
     Dates: start: 20140528, end: 20140702

REACTIONS (15)
  - Weight increased [Unknown]
  - Sinus tachycardia [Unknown]
  - Dyspnoea [Unknown]
  - Gastrointestinal haemorrhage [Unknown]
  - Pleural effusion [Unknown]
  - Respiratory distress [Unknown]
  - Atelectasis [Unknown]
  - Abdominal neoplasm [Unknown]
  - Cardiac failure congestive [Unknown]
  - Chest discomfort [Unknown]
  - Abdominal pain [Unknown]
  - Death [Fatal]
  - Cardiomegaly [Unknown]
  - Oedema peripheral [Unknown]
  - Haematochezia [Unknown]

NARRATIVE: CASE EVENT DATE: 20140624
